FAERS Safety Report 15314671 (Version 4)
Quarter: 2018Q4

REPORT INFORMATION
  Report Type: Spontaneous
  Country: FR (occurrence: FR)
  Receive Date: 20180824
  Receipt Date: 20181107
  Transmission Date: 20190204
  Serious: Yes (Hospitalization)
  Sender: FDA-Public Use
  Company Number: FR-TEVA-2018-FR-946761

PATIENT
  Age: 4 Year
  Sex: Female
  Weight: 13.5 kg

DRUGS (9)
  1. RENVELA [Suspect]
     Active Substance: SEVELAMER CARBONATE
     Indication: CHRONIC KIDNEY DISEASE
     Dosage: 1600 MILLIGRAM DAILY;
     Route: 048
  2. CARBONATE DE CALCIUM [Suspect]
     Active Substance: CALCIUM CARBONATE
     Indication: MINERAL SUPPLEMENTATION
     Route: 048
  3. BICARBONATE DE SODIUM [Suspect]
     Active Substance: SODIUM BICARBONATE
     Indication: MINERAL SUPPLEMENTATION
     Route: 048
  4. ARANESP [Suspect]
     Active Substance: DARBEPOETIN ALFA
     Indication: NEPHROGENIC ANAEMIA
     Route: 042
     Dates: start: 201710
  5. FLIXOTIDE [Suspect]
     Active Substance: FLUTICASONE PROPIONATE
     Indication: ASTHMA
     Dosage: 4 DOSAGE FORMS DAILY;
     Route: 055
  6. LEVOCARNIL 1 G/5 ML, SOLUTION INJECTABLE EN AMPOULE [Suspect]
     Active Substance: LEVOCARNITINE
     Indication: CARNITINE DEFICIENCY
     Dosage: 1 GRAM DAILY; 1 G/5 ML, INJECTABLE BULB SOLUTION
     Route: 048
  7. AMLOR [Suspect]
     Active Substance: AMLODIPINE BESYLATE
     Indication: HYPERTENSION
     Dosage: 2.5 MILLIGRAM DAILY;
     Route: 048
  8. FUROSEMIDE. [Suspect]
     Active Substance: FUROSEMIDE
     Indication: HYPERTENSION
     Dosage: 60 MILLIGRAM DAILY;
     Route: 048
  9. MINIPRESS [Suspect]
     Active Substance: PRAZOSIN HYDROCHLORIDE
     Indication: HYPERTENSION
     Route: 048

REACTIONS (1)
  - Status epilepticus [Recovered/Resolved]

NARRATIVE: CASE EVENT DATE: 20171127
